FAERS Safety Report 9739990 (Version 1)
Quarter: 2013Q4

REPORT INFORMATION
  Report Type: Report from Study
  Country: GB (occurrence: GB)
  Receive Date: 20131209
  Receipt Date: 20131209
  Transmission Date: 20140711
  Serious: Yes (Hospitalization)
  Sender: FDA-Public Use
  Company Number: GB-GLAXOSMITHKLINE-B0951486A

PATIENT
  Age: 77 Year
  Sex: Male
  Weight: 71.3 kg

DRUGS (13)
  1. OFATUMUMAB [Suspect]
     Indication: CHRONIC LYMPHOCYTIC LEUKAEMIA
     Dosage: 300MG CYCLIC
     Route: 042
     Dates: start: 20131203, end: 20131203
  2. BENDAMUSTINE [Suspect]
     Indication: CHRONIC LYMPHOCYTIC LEUKAEMIA
     Route: 065
  3. PARACETAMOL [Concomitant]
     Indication: CHRONIC LYMPHOCYTIC LEUKAEMIA
     Route: 048
     Dates: start: 20131203
  4. CHLORPHENIRAMINE [Concomitant]
     Indication: CHRONIC LYMPHOCYTIC LEUKAEMIA
     Route: 042
     Dates: start: 20131203, end: 20131203
  5. PREDNISOLONE [Concomitant]
     Indication: CHRONIC LYMPHOCYTIC LEUKAEMIA
     Route: 048
     Dates: start: 20131203
  6. ALLOPURINOL [Concomitant]
  7. METOCLOPRAMIDE [Concomitant]
  8. ACICLOVIR [Concomitant]
  9. GRANULOCYTE COLONY-STIMULATING FACTOR NOS [Concomitant]
  10. RAMIPRIL [Concomitant]
     Indication: HYPERTENSION
     Dosage: 2.5MG PER DAY
     Route: 048
     Dates: start: 20080615
  11. EZETIMIBE [Concomitant]
     Indication: HYPERCHOLESTEROLAEMIA
     Dosage: 10MG PER DAY
     Route: 048
     Dates: start: 20080615
  12. ATORVASTATIN [Concomitant]
     Indication: ACUTE CORONARY SYNDROME
     Dosage: 40MG PER DAY
     Route: 048
     Dates: start: 20131015
  13. AMLODIPINE [Concomitant]
     Indication: HYPERTENSION
     Route: 048
     Dates: start: 20131015

REACTIONS (1)
  - Hypoxia [Not Recovered/Not Resolved]
